FAERS Safety Report 5795201-4 (Version None)
Quarter: 2008Q2

REPORT INFORMATION
  Report Type: 
  Country: None (occurrence: None)
  Receive Date: 20080626
  Receipt Date: 20080610
  Transmission Date: 20081010
  Serious: Yes (Death, Life-Threatening, Other)
  Sender: FDA-Public Use
  Company Number: 2008US001246

PATIENT
  Age: 9 Year
  Sex: Female

DRUGS (28)
  1. AMBISOME [Suspect]
     Indication: PYELONEPHRITIS FUNGAL
     Dosage: 49.2 MG, UID/QD;PARENTERAL, 50 MG, UID/QD; PARENTERAL
     Route: 051
     Dates: start: 20000409, end: 20080422
  2. AMBISOME [Suspect]
     Indication: PYELONEPHRITIS FUNGAL
     Dosage: 49.2 MG, UID/QD;PARENTERAL, 50 MG, UID/QD; PARENTERAL
     Route: 051
     Dates: start: 20080423, end: 20080425
  3. PROGRAF [Suspect]
     Indication: GRAFT VERSUS HOST DISEASE
     Dosage: 0.1 MG, PARENTERAL
     Route: 051
     Dates: end: 20080427
  4. FOSCAVIR [Suspect]
     Indication: CYTOMEGALOVIRUS INFECTION
     Dosage: PARENTERAL
     Route: 051
     Dates: start: 20080415, end: 20080422
  5. NEUTROGIN(LENOGRASTIM) [Suspect]
     Indication: NEUTROPENIA
     Dosage: 100 UG, UID/QD, IV NOS
     Route: 042
     Dates: start: 20080415, end: 20080426
  6. TARGOCID [Suspect]
     Indication: INFECTION
     Dosage: PARENTERAL
     Route: 051
     Dates: start: 20080420, end: 20080425
  7. ANTIVIRALS FOR SYSTEMIC USE() [Suspect]
     Indication: VIRAL INFECTION
     Dosage: IV NOS,
     Route: 042
     Dates: start: 20080423, end: 20080423
  8. ANTIVIRALS FOR SYSTEMIC USE() [Suspect]
     Indication: VIRAL INFECTION
     Dosage: IV NOS,
     Route: 042
     Dates: start: 20080506, end: 20080506
  9. ANTIVIRALS FOR SYSTEMIC USE() [Suspect]
     Indication: VIRAL INFECTION
     Dosage: IV NOS,
     Route: 042
     Dates: start: 20080510, end: 20080510
  10. VFEND [Concomitant]
  11. POTASSIUM CHLORIDE [Concomitant]
  12. SOLU-MEDROL (METHYLPREDNISILONE SODIUM SUCCINATE) [Concomitant]
  13. ALPROSTADIL [Concomitant]
  14. NICARDIPINE HYDROCHLORIDE [Concomitant]
  15. OMEPRAL [Concomitant]
  16. CAPILLARY STABILIZING AGENTS [Concomitant]
  17. MORPHINE [Concomitant]
  18. DOPAMINE HYDROCHLORIDE [Concomitant]
  19. FIRSTCIN (CEFOZAPRAN HYDROCHLORIDE) [Concomitant]
  20. FULCALIQ 2 [Concomitant]
  21. ELEMENMIC (MINERALS NOS) [Concomitant]
  22. NOVO HEPARIN CALCIUM (HEPARIN CALCIUM) [Concomitant]
  23. SODIUM CHLORIDE 0.9% [Concomitant]
  24. URSO 250 [Concomitant]
  25. SULFAMETHOXAZOLE AND TRIMETHOPRIM [Concomitant]
  26. AMOBAN (ZOPICLONE) [Concomitant]
  27. ALBUMIN (HUMAN) [Concomitant]
  28. ATARAX [Concomitant]

REACTIONS (14)
  - BLOOD BILIRUBIN INCREASED [None]
  - BLOOD POTASSIUM DECREASED [None]
  - CARDIAC ARREST [None]
  - DIALYSIS [None]
  - NEUROBLASTOMA RECURRENT [None]
  - NEUTROPENIA [None]
  - PLATELET COUNT DECREASED [None]
  - PLEURAL EFFUSION [None]
  - PULMONARY OEDEMA [None]
  - RENAL FAILURE [None]
  - RESPIRATORY FAILURE [None]
  - VENTRICULAR EXTRASYSTOLES [None]
  - VIRAL INFECTION [None]
  - WEIGHT INCREASED [None]
